FAERS Safety Report 14584551 (Version 1)
Quarter: 2018Q1

REPORT INFORMATION
  Report Type: Spontaneous
  Country: US (occurrence: US)
  Receive Date: 20180301
  Receipt Date: 20180301
  Transmission Date: 20180509
  Serious: Yes (Hospitalization, Other)
  Sender: FDA-Public Use
  Company Number: US-ALEXION PHARMACEUTICALS INC-A201715001

PATIENT
  Age: 2 Year
  Sex: Female

DRUGS (1)
  1. KANUMA [Suspect]
     Active Substance: SEBELIPASE ALFA
     Indication: LYSOSOMAL ACID LIPASE DEFICIENCY
     Dosage: 3 MG/KG, QW
     Route: 042

REACTIONS (12)
  - Gastroenteritis Escherichia coli [Unknown]
  - Diarrhoea [Unknown]
  - Portal fibrosis [Unknown]
  - Gastroenteritis norovirus [Unknown]
  - Lethargy [Unknown]
  - Rhinovirus infection [Unknown]
  - Hypoglycaemia [Unknown]
  - Portal tract inflammation [Unknown]
  - Selective eating disorder [Recovering/Resolving]
  - Enterovirus infection [Unknown]
  - Vomiting [Unknown]
  - Malaise [Unknown]

NARRATIVE: CASE EVENT DATE: 201702
